FAERS Safety Report 6924334-1 (Version None)
Quarter: 2010Q3

REPORT INFORMATION
  Report Type: 
  Country: None (occurrence: None)
  Receive Date: 20100811
  Receipt Date: 20100811
  Transmission Date: 20110219
  Serious: Yes (Hospitalization)
  Sender: FDA-Public Use
  Company Number: None

PATIENT
  Sex: Male
  Weight: 43.3 kg

DRUGS (21)
  1. CEFEPIME [Suspect]
     Indication: CONDITION AGGRAVATED
     Dosage: 2000 MG Q8H IV
     Route: 042
     Dates: start: 20100725, end: 20100805
  2. CEFEPIME [Suspect]
     Indication: CYSTIC FIBROSIS
     Dosage: 2000 MG Q8H IV
     Route: 042
     Dates: start: 20100725, end: 20100805
  3. CEFEPIME [Suspect]
     Indication: PSEUDOMONAS INFECTION
     Dosage: 2000 MG Q8H IV
     Route: 042
     Dates: start: 20100725, end: 20100805
  4. GENTAMICIN [Suspect]
     Indication: CONDITION AGGRAVATED
     Dosage: 135-175 MG Q8H IV
     Route: 042
     Dates: start: 20100725, end: 20100805
  5. GENTAMICIN [Suspect]
     Indication: CYSTIC FIBROSIS
     Dosage: 135-175 MG Q8H IV
     Route: 042
     Dates: start: 20100725, end: 20100805
  6. GENTAMICIN [Suspect]
     Indication: PSEUDOMONAS INFECTION
     Dosage: 135-175 MG Q8H IV
     Route: 042
     Dates: start: 20100725, end: 20100805
  7. VANCOMYCIN [Concomitant]
  8. DIGOXIN [Concomitant]
  9. RANITIDINE [Concomitant]
  10. CYPROHEPTADINE HCL [Concomitant]
  11. HYPERTONIC SALINE [Concomitant]
  12. MIRTAZAPINE [Concomitant]
  13. ADVAIR DISKUS 100/50 [Concomitant]
  14. CALCIUM CITRATE + VITAMIN D [Concomitant]
  15. BOSENTAN [Concomitant]
  16. AZITHROMYCIN [Concomitant]
  17. SOURCECF [Concomitant]
  18. ALBUTEROL [Concomitant]
  19. PULMOZYME [Concomitant]
  20. ENOXAPARIN SODIUM [Concomitant]
  21. PROTONIX [Concomitant]

REACTIONS (2)
  - DIALYSIS [None]
  - RENAL FAILURE ACUTE [None]
